FAERS Safety Report 6425718-0 (Version None)
Quarter: 2009Q4

REPORT INFORMATION
  Report Type: 
  Country: None (occurrence: None)
  Receive Date: 20091103
  Receipt Date: 20091023
  Transmission Date: 20100525
  Serious: Yes (Hospitalization, Other)
  Sender: FDA-Public Use
  Company Number: PHEH2009US14080

PATIENT
  Sex: Female

DRUGS (13)
  1. EXJADE [Suspect]
     Indication: HAEMOLYTIC ANAEMIA
     Dosage: 1250 UNK, DAILY
     Route: 048
     Dates: start: 20090730, end: 20090925
  2. EXJADE [Suspect]
     Indication: IRON OVERLOAD
  3. LASIX [Concomitant]
  4. GLIPIZIDE [Concomitant]
     Indication: DIABETES MELLITUS
  5. ZAROXOLYN [Concomitant]
  6. REMERON [Concomitant]
  7. PREDNISONE TAB [Concomitant]
  8. SORBITOL [Concomitant]
  9. VESICARE [Concomitant]
  10. VITAMIN B-12 [Suspect]
  11. COUMADIN [Concomitant]
  12. ARANESP [Concomitant]
  13. DOCUSATE [Concomitant]

REACTIONS (17)
  - ABDOMINAL PAIN LOWER [None]
  - ABNORMAL BEHAVIOUR [None]
  - ALANINE AMINOTRANSFERASE INCREASED [None]
  - ASPARTATE AMINOTRANSFERASE INCREASED [None]
  - BLOOD ALBUMIN DECREASED [None]
  - BLOOD ALKALINE PHOSPHATASE INCREASED [None]
  - BLOOD BILIRUBIN INCREASED [None]
  - DECREASED APPETITE [None]
  - FAECALOMA [None]
  - FATIGUE [None]
  - HAEMOGLOBIN DECREASED [None]
  - JAUNDICE [None]
  - LETHARGY [None]
  - MENTAL STATUS CHANGES [None]
  - PLATELET COUNT INCREASED [None]
  - PROTHROMBIN TIME PROLONGED [None]
  - WHITE BLOOD CELL COUNT INCREASED [None]
